FAERS Safety Report 4694655-4 (Version None)
Quarter: 2005Q2

REPORT INFORMATION
  Report Type: 
  Country: None (occurrence: None)
  Receive Date: 20050617
  Receipt Date: 20050603
  Transmission Date: 20051028
  Serious: Yes (Hospitalization, Other)
  Sender: FDA-Public Use
  Company Number: 2005BI010886

PATIENT
  Sex: Female
  Weight: 54.8852 kg

DRUGS (2)
  1. AVONEX [Suspect]
     Indication: MULTIPLE SCLEROSIS
     Dosage: 30 UG;QW;IM
     Route: 030
     Dates: start: 19990101
  2. AVONEX [Suspect]
     Indication: MULTIPLE SCLEROSIS
     Dosage: 30 UG;QW;IM
     Route: 030

REACTIONS (6)
  - AGGRESSION [None]
  - BRONCHITIS [None]
  - CONVULSION [None]
  - PAIN [None]
  - PNEUMONIA [None]
  - TRIGEMINAL NEURALGIA [None]
